FAERS Safety Report 21459338 (Version 1)
Quarter: 2022Q4

REPORT INFORMATION
  Report Type: Spontaneous
  Country: AR (occurrence: AR)
  Receive Date: 20221014
  Receipt Date: 20221014
  Transmission Date: 20230113
  Serious: Yes (Hospitalization, Other)
  Sender: FDA-Public Use
  Company Number: AR-TRIS PHARMA, INC.-22AR010484

PATIENT

DRUGS (3)
  1. MORPHINE [Suspect]
     Active Substance: MORPHINE
     Indication: Pain
     Dosage: HIGH DOSE
  2. PREGABALIN [Suspect]
     Active Substance: PREGABALIN
     Indication: Pain
     Dosage: HIGH DOSE
  3. SUNITINIB [Concomitant]
     Active Substance: SUNITINIB
     Indication: Alveolar soft part sarcoma
     Dosage: UNK

REACTIONS (2)
  - Cholestasis [Recovering/Resolving]
  - Sphincter of Oddi dysfunction [Recovering/Resolving]
